FAERS Safety Report 6919184-6 (Version None)
Quarter: 2010Q3

REPORT INFORMATION
  Report Type: 
  Country: None (occurrence: None)
  Receive Date: 20100811
  Receipt Date: 20100730
  Transmission Date: 20110219
  Serious: Yes (Death, Other)
  Sender: FDA-Public Use
  Company Number: JP-PFIZER INC-2010026063

PATIENT
  Age: 41 Year
  Sex: Male
  Weight: 49.2 kg

DRUGS (5)
  1. SILDENAFIL CITRATE [Suspect]
     Indication: PULMONARY ARTERIAL HYPERTENSION
     Dosage: 40 MG, 3X/DAY
     Route: 048
     Dates: start: 20090829
  2. SILDENAFIL CITRATE [Suspect]
     Dosage: 30 MG, 3X/DAY
     Route: 048
     Dates: start: 20090826, end: 20090828
  3. SILDENAFIL CITRATE [Suspect]
     Dosage: 20 MG/DAY, 2X/DAY
     Route: 048
     Dates: start: 20090823, end: 20090825
  4. SILDENAFIL CITRATE [Suspect]
     Dosage: 20 MG/DAY, 2X/DAY
     Route: 048
     Dates: start: 20090820, end: 20090821
  5. FLOLAN [Concomitant]
     Indication: PULMONARY ARTERIAL HYPERTENSION
     Dosage: UNK
     Route: 042
     Dates: start: 20090831, end: 20090922

REACTIONS (3)
  - BLOOD PRESSURE DECREASED [None]
  - EPSTEIN-BARR VIRUS INFECTION [None]
  - PULMONARY HYPERTENSION [None]
